FAERS Safety Report 6225271-0 (Version None)
Quarter: 2009Q2

REPORT INFORMATION
  Report Type: 
  Country: None (occurrence: None)
  Receive Date: 20090612
  Receipt Date: 20090421
  Transmission Date: 20091009
  Serious: No
  Sender: FDA-Public Use
  Company Number: US-ABBOTT-09P-163-0567621-00

PATIENT
  Sex: Female
  Weight: 54.934 kg

DRUGS (8)
  1. HUMIRA [Suspect]
     Indication: PSORIASIS
     Route: 058
     Dates: start: 20081201, end: 20090116
  2. HUMIRA [Suspect]
     Dates: start: 20090409
  3. XANAX [Concomitant]
     Indication: ANXIOLYTIC THERAPY
  4. ATENOLOL [Concomitant]
     Indication: TACHYCARDIA
  5. SOMA [Concomitant]
     Indication: TENDON RUPTURE
  6. LORCET-HD [Concomitant]
     Indication: TENDON RUPTURE
  7. LORCET-HD [Concomitant]
     Indication: SPINAL OSTEOARTHRITIS
  8. ELOCON [Concomitant]
     Indication: PSORIASIS
     Route: 061

REACTIONS (9)
  - BRONCHITIS [None]
  - CYSTITIS [None]
  - HEADACHE [None]
  - HYPOAESTHESIA FACIAL [None]
  - OCCIPITAL NEURALGIA [None]
  - PARAESTHESIA [None]
  - PRURITUS [None]
  - PSORIASIS [None]
  - SWELLING FACE [None]
